FAERS Safety Report 9034634 (Version 1)
Quarter: 2013Q1

REPORT INFORMATION
  Report Type: Spontaneous
  Country: DE (occurrence: None)
  Receive Date: 20130118
  Receipt Date: 20130118
  Transmission Date: 20140127
  Serious: Yes (Congenital Anomaly, Other)
  Sender: FDA-Public Use
  Company Number: AUR-APL-2013-00509

PATIENT
  Sex: Female
  Weight: 3.5 kg

DRUGS (6)
  1. MIRTAZAPINE (MIRTAZAPINE) [Suspect]
     Indication: DEPRESSION
     Dosage: 1 D
     Route: 064
     Dates: start: 20111103, end: 20120817
  2. LEVOTHYROXINE (LEVOTHYROXINE) [Concomitant]
  3. CITALOPRAM (CITALOPRAM) [Concomitant]
  4. VALPROAT (VALPROATE SODIUM) [Concomitant]
  5. CHLORPROTHIXENE (CHLORPROTHIXENE) [Concomitant]
  6. FOLIC ACID (FOLIC ACID) [Concomitant]

REACTIONS (3)
  - Neonatal hypoxia [None]
  - Cyanosis neonatal [None]
  - Maternal drugs affecting foetus [None]
